FAERS Safety Report 6154569-X (Version None)
Quarter: 2009Q2

REPORT INFORMATION
  Report Type: 
  Country: None (occurrence: None)
  Receive Date: 20090414
  Receipt Date: 20090403
  Transmission Date: 20091009
  Serious: No
  Sender: FDA-Public Use
  Company Number: AU-ELI_LILLY_AND_COMPANY-AU200904000578

PATIENT
  Age: 52 Year
  Sex: Female

DRUGS (4)
  1. ZYPREXA [Suspect]
     Indication: SCHIZOAFFECTIVE DISORDER
     Dosage: 10 MG, UNK
  2. ZYPREXA [Suspect]
     Dosage: 7.5 MG, UNK
  3. ZYPREXA [Suspect]
     Dosage: 5 MG, UNK
  4. EPILIM [Concomitant]
     Dates: end: 20080601

REACTIONS (1)
  - NEUTROPENIA [None]
